FAERS Safety Report 13695338 (Version 5)
Quarter: 2017Q3

REPORT INFORMATION
  Report Type: Report from Study
  Country: US (occurrence: US)
  Receive Date: 20170627
  Receipt Date: 20170828
  Transmission Date: 20171127
  Serious: Yes (Death, Hospitalization)
  Sender: FDA-Public Use
  Company Number: US-ACTELION-A-NJ2017-154340

PATIENT
  Age: 59 Year
  Sex: Female
  Weight: 70.3 kg

DRUGS (3)
  1. ADEMPAS [Concomitant]
     Active Substance: RIOCIGUAT
  2. WARFARIN [Concomitant]
     Active Substance: WARFARIN
  3. OPSUMIT [Suspect]
     Active Substance: MACITENTAN
     Indication: PULMONARY ARTERIAL HYPERTENSION
     Dosage: 10 MG, QD
     Route: 048

REACTIONS (22)
  - Walking disability [Unknown]
  - Fatigue [Unknown]
  - Death [Fatal]
  - Fluid retention [Unknown]
  - Dyspnoea [Unknown]
  - Rash [Unknown]
  - Transplant evaluation [Unknown]
  - Abdominal pain upper [Unknown]
  - Cough [Unknown]
  - Hypotension [Unknown]
  - Pulmonary arterial hypertension [Unknown]
  - Condition aggravated [Unknown]
  - Chest pain [Unknown]
  - Pulmonary oedema [Unknown]
  - Dyspnoea exertional [Not Recovered/Not Resolved]
  - Palpitations [Unknown]
  - Feeling abnormal [Unknown]
  - Pneumonia [Unknown]
  - Productive cough [Unknown]
  - Joint swelling [Unknown]
  - Dyspepsia [Unknown]
  - Pain [Unknown]
